FAERS Safety Report 13185835 (Version 2)
Quarter: 2017Q1

REPORT INFORMATION
  Report Type: Spontaneous
  Country: FR (occurrence: FR)
  Receive Date: 20170203
  Receipt Date: 20170307
  Transmission Date: 20170428
  Serious: Yes (Other)
  Sender: FDA-Public Use
  Company Number: FR-ABBVIE-17P-056-1858087-00

PATIENT
  Age: 43 Year
  Sex: Female

DRUGS (1)
  1. HUMIRA [Suspect]
     Active Substance: ADALIMUMAB
     Indication: ANKYLOSING SPONDYLITIS
     Route: 058
     Dates: start: 2014, end: 201701

REACTIONS (1)
  - Visual acuity reduced [Recovering/Resolving]

NARRATIVE: CASE EVENT DATE: 20160909
